FAERS Safety Report 12418339 (Version 2)
Quarter: 2016Q3

REPORT INFORMATION
  Report Type: Report from Study
  Country: US (occurrence: US)
  Receive Date: 20160531
  Receipt Date: 20160705
  Transmission Date: 20161109
  Serious: Yes (Hospitalization)
  Sender: FDA-Public Use
  Company Number: US-009507513-1605USA013694

PATIENT
  Age: 51 Year
  Sex: Female

DRUGS (3)
  1. KEYTRUDA [Suspect]
     Active Substance: PEMBROLIZUMAB
     Dosage: 2 MG/KG, EVERY 3 WEEKS, X 4 CYCLES, UNKNOWN
     Route: 042
  2. IPILIMUMAB [Suspect]
     Active Substance: IPILIMUMAB
     Indication: NEOPLASM MALIGNANT
     Dosage: 1 MG/KG, UNKNOWN
     Route: 042
     Dates: start: 20150515, end: 20150728
  3. IBUPROFEN. [Concomitant]
     Active Substance: IBUPROFEN
     Dosage: 800 MG, AS NEEDED

REACTIONS (7)
  - Ocular icterus [Not Recovered/Not Resolved]
  - Prerenal failure [Recovered/Resolved]
  - Fatigue [Unknown]
  - Transaminases increased [Not Recovered/Not Resolved]
  - Asthenia [Unknown]
  - Hepatocellular injury [Not Recovered/Not Resolved]
  - Pancytopenia [Not Recovered/Not Resolved]

NARRATIVE: CASE EVENT DATE: 2015
